FAERS Safety Report 17307523 (Version 6)
Quarter: 2022Q2

REPORT INFORMATION
  Report Type: Spontaneous
  Country: US (occurrence: US)
  Receive Date: 20200123
  Receipt Date: 20220512
  Transmission Date: 20220720
  Serious: Yes (Other)
  Sender: FDA-Public Use
  Company Number: None

PATIENT
  Age: 9 Year
  Sex: Male

DRUGS (1)
  1. KYMRIAH [Suspect]
     Active Substance: TISAGENLECLEUCEL
     Indication: Acute lymphocytic leukaemia recurrent
     Dosage: 1600000 DOSAGE FORM, ONCE/SINGLE
     Route: 042
     Dates: start: 20190709, end: 20190709

REACTIONS (1)
  - Acute lymphocytic leukaemia recurrent [Not Recovered/Not Resolved]

NARRATIVE: CASE EVENT DATE: 20200116
